FAERS Safety Report 23237369 (Version 1)
Quarter: 2023Q4

REPORT INFORMATION
  Report Type: Spontaneous
  Country: US (occurrence: US)
  Receive Date: 20231128
  Receipt Date: 20231128
  Transmission Date: 20240109
  Serious: No
  Sender: FDA-Public Use
  Company Number: US-SANDOZ-SDZ2023US060568

PATIENT
  Sex: Male

DRUGS (1)
  1. LISINOPRIL [Suspect]
     Active Substance: LISINOPRIL
     Indication: Product used for unknown indication
     Dosage: 20 MG, 1 TABLET IN AM AND 1.5 TABLETS IN PM
     Route: 065
     Dates: start: 2003

REACTIONS (2)
  - Ejection fraction decreased [Unknown]
  - Hypoacusis [Unknown]
